FAERS Safety Report 6215555-4 (Version None)
Quarter: 2009Q2

REPORT INFORMATION
  Report Type: 
  Country: None (occurrence: None)
  Receive Date: 20090605
  Receipt Date: 20070515
  Transmission Date: 20091009
  Serious: Yes (Congenital Anomaly, Other)
  Sender: FDA-Public Use
  Company Number: US-ASTRAZENECA-2006UW21236

PATIENT
  Sex: Female
  Weight: 86.6 kg

DRUGS (9)
  1. SEROQUEL [Suspect]
     Indication: BIPOLAR DISORDER
     Route: 048
     Dates: start: 20000809
  2. SEROQUEL [Suspect]
     Route: 048
  3. RISPERDAL [Concomitant]
     Route: 048
     Dates: start: 20011108
  4. ZOLOFT [Concomitant]
     Indication: DEPRESSION
     Route: 048
     Dates: start: 20000809
  5. PROZAC [Concomitant]
     Route: 048
  6. BUSPAR [Concomitant]
     Route: 048
  7. LIPITOR [Concomitant]
     Route: 048
     Dates: start: 20070721
  8. AMITRIPTLINE HYDROCHLORIDE TAB [Concomitant]
     Route: 048
     Dates: start: 20050207
  9. PENTOXIFYLLINE [Concomitant]
     Route: 048
     Dates: start: 20050125

REACTIONS (2)
  - DIABETES MELLITUS [None]
  - SURGERY [None]
